FAERS Safety Report 4991959-2 (Version None)
Quarter: 2006Q2

REPORT INFORMATION
  Report Type: 
  Country: None (occurrence: None)
  Receive Date: 20060504
  Receipt Date: 20050218
  Transmission Date: 20061013
  Serious: Yes (Hospitalization)
  Sender: FDA-Public Use
  Company Number: US-MERCK-0502USA02955

PATIENT
  Age: 71 Year
  Sex: Male
  Weight: 125 kg

DRUGS (30)
  1. ZITHROMAX [Concomitant]
     Route: 065
  2. HYDRALAZINE [Concomitant]
     Route: 065
  3. DITROPAN [Concomitant]
     Route: 065
  4. ASPIRIN [Concomitant]
     Route: 065
  5. NITROGLYCERIN [Concomitant]
     Route: 060
  6. VIOXX [Suspect]
     Indication: BACK PAIN
     Route: 048
     Dates: start: 20001201, end: 20010816
  7. VIOXX [Suspect]
     Route: 048
     Dates: start: 20020115, end: 20040521
  8. ZESTRIL [Concomitant]
     Route: 065
  9. NITROQUICK [Concomitant]
     Route: 065
  10. GLIPIZIDE [Concomitant]
     Route: 065
  11. GLUCOPHAGE [Concomitant]
     Route: 065
  12. KLOR-CON [Concomitant]
     Route: 065
  13. TOPAMAX [Concomitant]
     Route: 065
  14. LIPITOR [Concomitant]
     Route: 065
  15. TERAZOSIN HYDROCHLORIDE [Concomitant]
     Route: 065
  16. METFORMIN [Concomitant]
     Route: 065
  17. K-DUR 10 [Concomitant]
     Route: 065
  18. GEMFIBROZIL [Concomitant]
     Route: 065
  19. AVODART [Concomitant]
     Route: 065
  20. LOTREL [Concomitant]
     Route: 065
  21. VEETIDS [Concomitant]
     Route: 065
  22. MIRALAX [Concomitant]
     Route: 065
  23. PREVACID [Concomitant]
     Route: 065
  24. FUROSEMIDE [Concomitant]
     Route: 065
  25. CIPROFLOXACIN HCL [Concomitant]
     Route: 065
  26. METOPROLOL [Concomitant]
     Route: 065
  27. MYTUSSIN [Concomitant]
     Route: 065
  28. AMBIEN [Concomitant]
     Route: 065
  29. SKELAXIN [Concomitant]
     Route: 065
  30. CLONIDINE [Concomitant]
     Route: 065

REACTIONS (7)
  - ANAEMIA POSTOPERATIVE [None]
  - ANGINA PECTORIS [None]
  - CORONARY ARTERY DISEASE [None]
  - GASTROOESOPHAGEAL REFLUX DISEASE [None]
  - INTERMITTENT CLAUDICATION [None]
  - MYOCARDIAL INFARCTION [None]
  - RENAL FAILURE [None]
